FAERS Safety Report 18129718 (Version 1)
Quarter: 2020Q3

REPORT INFORMATION
  Report Type: Spontaneous
  Country: US (occurrence: US)
  Receive Date: 20200807
  Receipt Date: 20200807
  Transmission Date: 20201103
  Serious: Yes (Hospitalization)
  Sender: FDA-Public Use
  Company Number: None

PATIENT
  Age: 54 Year
  Sex: Male

DRUGS (7)
  1. MYCOPHENOLIC/360MG [Suspect]
     Active Substance: MYCOPHENOLIC ACID
     Indication: CHRONIC KIDNEY DISEASE
     Route: 048
     Dates: start: 20181022
  2. PREDNISONE. [Concomitant]
     Active Substance: PREDNISONE
  3. ESCITALOPRAM [Suspect]
     Active Substance: ESCITALOPRAM OXALATE
  4. FELODIPINE. [Concomitant]
     Active Substance: FELODIPINE
  5. PEPCID [Concomitant]
     Active Substance: FAMOTIDINE
  6. ALBUTEROL. [Suspect]
     Active Substance: ALBUTEROL
     Indication: CHRONIC KIDNEY DISEASE
     Route: 048
     Dates: start: 20160202
  7. LOSARTAN. [Concomitant]
     Active Substance: LOSARTAN

REACTIONS (1)
  - Pneumonia [None]
